FAERS Safety Report 16767407 (Version 1)
Quarter: 2019Q3

REPORT INFORMATION
  Report Type: Spontaneous
  Country: FR (occurrence: FR)
  Receive Date: 20190903
  Receipt Date: 20190903
  Transmission Date: 20191005
  Serious: Yes (Other)
  Sender: FDA-Public Use
  Company Number: FR-TEVA-2019-FR-1100751

PATIENT
  Age: 59 Year
  Sex: Female

DRUGS (9)
  1. VINDESINE (SULFATE DE) [Suspect]
     Active Substance: VINDESINE
     Indication: ADULT T-CELL LYMPHOMA/LEUKAEMIA
     Route: 042
     Dates: start: 20190722
  2. CYCLOPHOSPHAMIDE. [Suspect]
     Active Substance: CYCLOPHOSPHAMIDE
     Indication: ADULT T-CELL LYMPHOMA/LEUKAEMIA
     Route: 042
     Dates: start: 20190722
  3. BLEOMYCINE [Suspect]
     Active Substance: BLEOMYCIN SULFATE
     Indication: ADULT T-CELL LYMPHOMA/LEUKAEMIA
     Route: 042
     Dates: start: 20190722
  4. MESNA. [Suspect]
     Active Substance: MESNA
     Route: 065
     Dates: start: 20190722
  5. CORTANCYL [Suspect]
     Active Substance: PREDNISONE
     Route: 048
     Dates: start: 20190722, end: 20190722
  6. ZOPHREN [Suspect]
     Active Substance: ONDANSETRON
     Route: 065
     Dates: start: 20190722
  7. LARGACTIL [Suspect]
     Active Substance: CHLORPROMAZINE
     Route: 042
     Dates: start: 20190725
  8. DOXORUBICIN [Suspect]
     Active Substance: DOXORUBICIN
     Indication: ADULT T-CELL LYMPHOMA/LEUKAEMIA
     Route: 042
     Dates: start: 20190722, end: 20190722
  9. PRIMPERAN [Suspect]
     Active Substance: METOCLOPRAMIDE HYDROCHLORIDE
     Indication: NAUSEA
     Route: 065
     Dates: start: 20190722

REACTIONS (1)
  - Hepatocellular injury [Recovered/Resolved]

NARRATIVE: CASE EVENT DATE: 20190726
